FAERS Safety Report 19480672 (Version 1)
Quarter: 2021Q2

REPORT INFORMATION
  Report Type: Spontaneous
  Country: US (occurrence: US)
  Receive Date: 20210630
  Receipt Date: 20210630
  Transmission Date: 20210717
  Serious: Yes (Other)
  Sender: FDA-Public Use
  Company Number: US-FOUNDATIONCONSUMERHC-2021-US-008948

PATIENT
  Age: 25 Year
  Sex: Female
  Weight: 61.24 kg

DRUGS (1)
  1. PLAN B ONE?STEP [Suspect]
     Active Substance: LEVONORGESTREL
     Indication: CONTRACEPTION
     Dosage: 1.5MG APPOXIMATELY 1?2 TIMES A MONTH
     Route: 048
     Dates: start: 2017, end: 20210420

REACTIONS (10)
  - Blood urine present [Recovered/Resolved]
  - Pregnancy after post coital contraception [Unknown]
  - Vomiting [Not Recovered/Not Resolved]
  - Drug ineffective [Unknown]
  - Dysmenorrhoea [Recovered/Resolved]
  - Product use in unapproved indication [Unknown]
  - Intentional product misuse [Unknown]
  - COVID-19 [Not Recovered/Not Resolved]
  - Malaise [Not Recovered/Not Resolved]
  - Exposure during pregnancy [Recovered/Resolved]

NARRATIVE: CASE EVENT DATE: 2017
